FAERS Safety Report 7266109-2 (Version None)
Quarter: 2011Q1

REPORT INFORMATION
  Report Type: 
  Country: None (occurrence: None)
  Receive Date: 20110131
  Receipt Date: 20110120
  Transmission Date: 20110831
  Serious: Yes (Death, Hospitalization)
  Sender: FDA-Public Use
  Company Number: BE-BRISTOL-MYERS SQUIBB COMPANY-15503378

PATIENT
  Age: 73 Year
  Sex: Female

DRUGS (9)
  1. OMEPRAZOLE [Concomitant]
     Dates: start: 20080124, end: 20080306
  2. VINDESINE [Suspect]
     Indication: NON-HODGKIN'S LYMPHOMA
     Dates: start: 20080124, end: 20080306
  3. EPOETIN BETA [Concomitant]
     Dates: start: 20080307, end: 20080321
  4. ETOPOSIDE [Suspect]
     Indication: NON-HODGKIN'S LYMPHOMA
     Dates: start: 20080124, end: 20080306
  5. RITUXIMAB [Suspect]
     Indication: NON-HODGKIN'S LYMPHOMA
     Dates: start: 20080124, end: 20080306
  6. CYTARABINE [Suspect]
     Indication: NON-HODGKIN'S LYMPHOMA
     Dates: start: 20080124, end: 20080306
  7. NEULASTA [Suspect]
     Route: 058
     Dates: start: 20080209, end: 20080308
  8. BLEOMYCIN SULFATE [Suspect]
     Indication: NON-HODGKIN'S LYMPHOMA
     Route: 042
     Dates: start: 20080124, end: 20080306
  9. ARANESP [Concomitant]
     Dates: start: 20080307, end: 20080320

REACTIONS (4)
  - PSEUDOMONAS INFECTION [None]
  - SEPTIC SHOCK [None]
  - EMPHYSEMA [None]
  - STENOTROPHOMONAS INFECTION [None]
